FAERS Safety Report 24977763 (Version 2)
Quarter: 2025Q1

REPORT INFORMATION
  Report Type: Spontaneous
  Country: US (occurrence: US)
  Receive Date: 20250217
  Receipt Date: 20250222
  Transmission Date: 20250408
  Serious: Yes (Hospitalization)
  Sender: TEVA
  Company Number: US-TEVA-VS-3296673

PATIENT
  Sex: Male

DRUGS (3)
  1. UZEDY [Suspect]
     Active Substance: RISPERIDONE
     Indication: Schizophrenia
     Dosage: 125/0.35MG/ML
     Route: 065
     Dates: start: 202410
  2. UZEDY [Suspect]
     Active Substance: RISPERIDONE
     Dosage: 125/0.35MG/ML
     Route: 065
  3. UZEDY [Suspect]
     Active Substance: RISPERIDONE
     Dosage: 250 MG / 0.7 ML
     Route: 065
     Dates: start: 202410

REACTIONS (3)
  - Condition aggravated [Not Recovered/Not Resolved]
  - Violence-related symptom [Not Recovered/Not Resolved]
  - Disease recurrence [Not Recovered/Not Resolved]
